FAERS Safety Report 23938808 (Version 1)
Quarter: 2024Q2

REPORT INFORMATION
  Report Type: Spontaneous
  Country: US (occurrence: US)
  Receive Date: 20240604
  Receipt Date: 20240604
  Transmission Date: 20240716
  Serious: No
  Sender: FDA-Public Use
  Company Number: US-BRISTOL-MYERS SQUIBB COMPANY-2024-090257

PATIENT
  Age: 91 Year
  Sex: Male
  Weight: 67.13 kg

DRUGS (1)
  1. REVLIMID [Suspect]
     Active Substance: LENALIDOMIDE
     Indication: Plasma cell myeloma
     Dosage: FREQUENCY: MONDAY, WEDNESDAY, AND FRIDAY FOR 3 WEEK ON THEN 1 WEEK OFF
     Route: 048

REACTIONS (2)
  - Diarrhoea [Recovering/Resolving]
  - Off label use [Unknown]
